FAERS Safety Report 11037425 (Version 1)
Quarter: 2015Q2

REPORT INFORMATION
  Report Type: Spontaneous
  Country: IT (occurrence: IT)
  Receive Date: 20150416
  Receipt Date: 20150416
  Transmission Date: 20150821
  Serious: Yes (Other)
  Sender: FDA-Public Use
  Company Number: IT-JNJFOC-20150407158

PATIENT
  Age: 36 Year
  Sex: Female

DRUGS (5)
  1. VECLAM [Concomitant]
     Active Substance: CLARITHROMYCIN
     Indication: WHEEZING
     Route: 048
     Dates: start: 20150117, end: 20150121
  2. TAVANIC [Concomitant]
     Active Substance: LEVOFLOXACIN
     Indication: WHEEZING
     Route: 048
     Dates: start: 20150129, end: 20150205
  3. UNIXIME [Concomitant]
     Active Substance: CEFIXIME
     Indication: WHEEZING
     Route: 048
     Dates: start: 20150123, end: 20150127
  4. SPORANOX [Suspect]
     Active Substance: ITRACONAZOLE\SODIUM CHLORIDE
     Indication: VULVOVAGINAL CANDIDIASIS
     Route: 048
     Dates: start: 20150212, end: 20150219
  5. ROCEFIN [Concomitant]
     Active Substance: CEFTRIAXONE SODIUM
     Indication: WHEEZING
     Route: 030
     Dates: start: 20150206, end: 20150211

REACTIONS (4)
  - Skin exfoliation [Recovered/Resolved]
  - Pruritus [Recovered/Resolved]
  - Dry throat [Recovered/Resolved]
  - Abdominal pain upper [Recovered/Resolved]

NARRATIVE: CASE EVENT DATE: 20150219
